FAERS Safety Report 16929676 (Version 1)
Quarter: 2019Q4

REPORT INFORMATION
  Report Type: Report from Study
  Country: US (occurrence: US)
  Receive Date: 20191017
  Receipt Date: 20191017
  Transmission Date: 20200122
  Serious: Yes (Hospitalization)
  Sender: FDA-Public Use
  Company Number: US-EISAI MEDICAL RESEARCH-EC-2019-063140

PATIENT
  Age: 75 Year
  Sex: Male

DRUGS (1)
  1. LENVIMA [Suspect]
     Active Substance: LENVATINIB
     Indication: HEPATOCELLULAR CARCINOMA
     Route: 048
     Dates: start: 20190927, end: 201910

REACTIONS (11)
  - Heart rate increased [Not Recovered/Not Resolved]
  - Weight decreased [Recovered/Resolved]
  - Speech disorder [Not Recovered/Not Resolved]
  - Diarrhoea [Recovered/Resolved]
  - Blood sodium decreased [Recovering/Resolving]
  - Pyrexia [Recovering/Resolving]
  - Fatigue [Not Recovered/Not Resolved]
  - Pneumonia [Unknown]
  - Nausea [Recovered/Resolved]
  - Chest pain [Unknown]
  - Dysphonia [Not Recovered/Not Resolved]

NARRATIVE: CASE EVENT DATE: 201909
